FAERS Safety Report 21798725 (Version 1)
Quarter: 2022Q4

REPORT INFORMATION
  Report Type: Spontaneous
  Country: CN (occurrence: CN)
  Receive Date: 20221230
  Receipt Date: 20221230
  Transmission Date: 20230113
  Serious: Yes (Hospitalization, Other)
  Sender: FDA-Public Use
  Company Number: CN-MLMSERVICE-20221214-3980678-1

PATIENT
  Age: 17 Year
  Sex: Male

DRUGS (2)
  1. METHOTREXATE [Suspect]
     Active Substance: METHOTREXATE
     Indication: Osteosarcoma
     Dosage: 10 G/M2, CUMULATIVE DOSE- 40 G/M2
     Dates: start: 2011, end: 2011
  2. EPIRUBICIN [Suspect]
     Active Substance: EPIRUBICIN
     Indication: Osteosarcoma
     Dosage: 80 MG/M2, CUMULATIVE DOSE- 320 MG/M2
     Dates: start: 2011, end: 2011

REACTIONS (3)
  - Fracture nonunion [Recovered/Resolved]
  - Fibula fracture [Recovered/Resolved]
  - Hyperkeratosis [Unknown]

NARRATIVE: CASE EVENT DATE: 20120101
